FAERS Safety Report 13795313 (Version 2)
Quarter: 2018Q3

REPORT INFORMATION
  Report Type: Report from Study
  Country: US (occurrence: US)
  Receive Date: 20170726
  Receipt Date: 20180716
  Transmission Date: 20181010
  Serious: Yes (Other)
  Sender: FDA-Public Use
  Company Number: US-IPSEN BIOPHARMACEUTICALS, INC.-2017-04336

PATIENT
  Age: 61 Year
  Sex: Female
  Weight: 90 kg

DRUGS (17)
  1. SOMATULINE DEPOT [Suspect]
     Active Substance: LANREOTIDE ACETATE
     Dosage: 90 MG
     Route: 058
     Dates: start: 2014
  2. HYDROCODONE [Concomitant]
     Active Substance: HYDROCODONE
     Route: 048
  3. LINZESS [Concomitant]
     Active Substance: LINACLOTIDE
  4. DULOXETINE. [Concomitant]
     Active Substance: DULOXETINE
     Route: 048
  5. CALTRATE 600+D [Concomitant]
     Route: 048
  6. IBUPROFEN. [Concomitant]
     Active Substance: IBUPROFEN
  7. METHYLPREDNISOLONE. [Concomitant]
     Active Substance: METHYLPREDNISOLONE
  8. SANDOSTATIN LAR DEPOT [Suspect]
     Active Substance: OCTREOTIDE ACETATE
     Indication: PRODUCT USED FOR UNKNOWN INDICATION
     Dates: start: 2011, end: 2014
  9. LEVOTHYROXINE. [Concomitant]
     Active Substance: LEVOTHYROXINE
     Route: 048
  10. LEVOTHYROXINE. [Concomitant]
     Active Substance: LEVOTHYROXINE
     Route: 048
  11. SOMATULINE DEPOT [Suspect]
     Active Substance: LANREOTIDE ACETATE
     Indication: ACROMEGALY
     Dosage: 120 MG
     Route: 058
     Dates: start: 201612, end: 20180709
  12. SOMATULINE DEPOT [Suspect]
     Active Substance: LANREOTIDE ACETATE
     Dosage: 90 MG
     Route: 058
     Dates: start: 201508, end: 201612
  13. BENZONATATE. [Concomitant]
     Active Substance: BENZONATATE
  14. AZELASTINE. [Concomitant]
     Active Substance: AZELASTINE HYDROCHLORIDE
  15. BIOTIN [Concomitant]
     Active Substance: BIOTIN
     Route: 048
  16. MELOXICAM. [Concomitant]
     Active Substance: MELOXICAM
     Route: 048
  17. METOPROLOL SUCCINATE ER [Concomitant]
     Active Substance: METOPROLOL SUCCINATE
     Route: 048

REACTIONS (19)
  - Weight increased [Unknown]
  - Diarrhoea [Recovered/Resolved]
  - Vomiting [Unknown]
  - Flatulence [Unknown]
  - Abdominal pain [Recovered/Resolved]
  - Nausea [Unknown]
  - Cholelithiasis [Not Recovered/Not Resolved]
  - Blood glucose increased [Unknown]
  - Nausea [Recovered/Resolved]
  - Vomiting [Recovered/Resolved]
  - Abdominal pain [Unknown]
  - Drug dose omission [Unknown]
  - Fatigue [Not Recovered/Not Resolved]
  - Flatulence [Recovered/Resolved]
  - Abdominal pain [Unknown]
  - Diarrhoea [Unknown]
  - Weight increased [Unknown]
  - Diarrhoea [Unknown]
  - Inappropriate schedule of drug administration [Unknown]

NARRATIVE: CASE EVENT DATE: 2014
